FAERS Safety Report 8765325 (Version 1)
Quarter: 2012Q4

REPORT INFORMATION
  Report Type: Report from Study
  Country: US (occurrence: US)
  Receive Date: 20120830
  Receipt Date: 20120830
  Transmission Date: 20130627
  Serious: Yes (Death)
  Sender: FDA-Public Use
  Company Number: US-ASTELLAS-2012US007338

PATIENT
  Age: 47 Year
  Sex: Female

DRUGS (2)
  1. ERLOTINIB TABLET [Suspect]
     Indication: CERVIX CARCINOMA
     Dosage: Daily
     Route: 048
  2. CAPECITABINE [Suspect]
     Indication: CERVIX CARCINOMA
     Dosage: BID
     Route: 048
     Dates: start: 20120227

REACTIONS (2)
  - Off label use [Unknown]
  - Death [Fatal]
